FAERS Safety Report 10598742 (Version 1)
Quarter: 2014Q4

REPORT INFORMATION
  Report Type: Spontaneous
  Country: US (occurrence: US)
  Receive Date: 20141121
  Receipt Date: 20141121
  Transmission Date: 20150529
  Serious: No
  Sender: FDA-Public Use
  Company Number: US-PFIZER INC-2014318114

PATIENT
  Age: 57 Year
  Sex: Female
  Weight: 147 kg

DRUGS (18)
  1. COUMADIN [Suspect]
     Active Substance: WARFARIN SODIUM
     Indication: THROMBOSIS
     Dosage: 4 MG, DAILY
     Dates: start: 20130614
  2. SEROQUEL [Concomitant]
     Active Substance: QUETIAPINE FUMARATE
  3. COUMADIN [Suspect]
     Active Substance: WARFARIN SODIUM
     Dosage: 2 MG, 2X/WEEK
     Dates: start: 20130614
  4. LAMICTAL [Concomitant]
     Active Substance: LAMOTRIGINE
  5. GEODON [Concomitant]
     Active Substance: ZIPRASIDONE HYDROCHLORIDE\ZIPRASIDONE MESYLATE
  6. PROZAC [Concomitant]
     Active Substance: FLUOXETINE HYDROCHLORIDE
  7. LISINOPRIL. [Concomitant]
     Active Substance: LISINOPRIL
  8. KLONOPIN [Concomitant]
     Active Substance: CLONAZEPAM
  9. PRAVASTATIN [Concomitant]
     Active Substance: PRAVASTATIN\PRAVASTATIN SODIUM
  10. LANTUS [Concomitant]
     Active Substance: INSULIN GLARGINE
  11. HUMULIN R [Concomitant]
     Active Substance: INSULIN HUMAN
  12. IRON [Concomitant]
     Active Substance: IRON
  13. CHANTIX [Suspect]
     Active Substance: VARENICLINE TARTRATE
     Indication: SMOKING CESSATION THERAPY
     Dosage: 1 MG, 2X/DAY
     Dates: start: 20141108
  14. VALIUM [Concomitant]
     Active Substance: DIAZEPAM
  15. NEURONTIN [Concomitant]
     Active Substance: GABAPENTIN
  16. GLUCOPHAGE [Concomitant]
     Active Substance: METFORMIN HYDROCHLORIDE
  17. VITAMIN B12 [Concomitant]
     Active Substance: CYANOCOBALAMIN
  18. LOVENOX [Concomitant]
     Active Substance: ENOXAPARIN SODIUM
     Indication: ANTICOAGULATION DRUG LEVEL DECREASED
     Dosage: UNK, AS NEEDED

REACTIONS (2)
  - Contusion [Not Recovered/Not Resolved]
  - Anticoagulation drug level increased [Unknown]

NARRATIVE: CASE EVENT DATE: 20141109
